FAERS Safety Report 16880203 (Version 1)
Quarter: 2019Q4

REPORT INFORMATION
  Report Type: Spontaneous
  Country: US (occurrence: US)
  Receive Date: 20191003
  Receipt Date: 20191003
  Transmission Date: 20200122
  Serious: No
  Sender: FDA-Public Use
  Company Number: US-TEVA-2019-US-1116347

PATIENT
  Sex: Male

DRUGS (1)
  1. CLONAZEPAM ACTAVIS [Suspect]
     Active Substance: CLONAZEPAM
     Indication: ANXIETY DISORDER
     Route: 065

REACTIONS (5)
  - Withdrawal syndrome [Unknown]
  - Adverse event [Unknown]
  - Drug ineffective [Unknown]
  - Product formulation issue [Unknown]
  - Impaired work ability [Unknown]
